FAERS Safety Report 10340543 (Version 2)
Quarter: 2014Q3

REPORT INFORMATION
  Report Type: Spontaneous
  Country: SE (occurrence: SE)
  Receive Date: 20140724
  Receipt Date: 20140819
  Transmission Date: 20150326
  Serious: Yes (Other)
  Sender: FDA-Public Use
  Company Number: ALCN2014SE004135

PATIENT
  Sex: Female

DRUGS (1)
  1. AZOPT [Suspect]
     Active Substance: BRINZOLAMIDE
     Dosage: UNK
     Route: 047

REACTIONS (5)
  - Chest pain [Unknown]
  - Malaise [Unknown]
  - Abdominal discomfort [Unknown]
  - Musculoskeletal pain [Unknown]
  - Gastric disorder [Unknown]
